FAERS Safety Report 7764928-7 (Version None)
Quarter: 2011Q3

REPORT INFORMATION
  Report Type: 
  Country: None (occurrence: None)
  Receive Date: 20110920
  Receipt Date: 20110920
  Transmission Date: 20111222
  Serious: Yes (Hospitalization)
  Sender: FDA-Public Use
  Company Number: None

PATIENT
  Sex: Female
  Weight: 61.3 kg

DRUGS (3)
  1. CARBOPLATIN [Suspect]
     Dosage: 877 MG
     Dates: start: 20110628, end: 20110905
  2. TAXOTERE [Suspect]
     Dosage: 127 MG
     Dates: end: 20110830
  3. HERCEPTIN [Suspect]
     Dosage: 372 MG
     Dates: end: 20110913

REACTIONS (3)
  - VOMITING [None]
  - ENURESIS [None]
  - SYNCOPE [None]
